FAERS Safety Report 14824551 (Version 2)
Quarter: 2018Q3

REPORT INFORMATION
  Report Type: Spontaneous
  Country: US (occurrence: US)
  Receive Date: 20180429
  Receipt Date: 20180709
  Transmission Date: 20181010
  Serious: Yes (Hospitalization)
  Sender: FDA-Public Use
  Company Number: US-JNJFOC-20180424349

PATIENT
  Age: 43 Year
  Sex: Female

DRUGS (2)
  1. XARELTO [Suspect]
     Active Substance: RIVAROXABAN
     Indication: DEEP VEIN THROMBOSIS
     Route: 048
     Dates: start: 20170814, end: 20170903
  2. XARELTO [Suspect]
     Active Substance: RIVAROXABAN
     Indication: THROMBOPHLEBITIS SUPERFICIAL
     Route: 048
     Dates: start: 20170814, end: 20170903

REACTIONS (1)
  - Menorrhagia [Unknown]

NARRATIVE: CASE EVENT DATE: 201708
